FAERS Safety Report 5811523-2 (Version None)
Quarter: 2008Q3

REPORT INFORMATION
  Report Type: 
  Country: None (occurrence: None)
  Receive Date: 20080716
  Receipt Date: 20080707
  Transmission Date: 20090109
  Serious: Yes (Death)
  Sender: FDA-Public Use
  Company Number: JP-MERCK-0807USA01888

PATIENT
  Age: 53 Year
  Sex: Female

DRUGS (29)
  1. PEPCID [Suspect]
     Indication: PEPTIC ULCER
     Route: 048
  2. PEPCID [Suspect]
     Route: 041
  3. INSULIN HUMAN [Concomitant]
     Route: 065
  4. KETAMINE HYDROCHLORIDE [Concomitant]
     Indication: SEDATION
     Route: 042
  5. FENTANYL CITRATE [Concomitant]
     Indication: SEDATION
     Route: 042
  6. TEICOPLANIN [Concomitant]
     Indication: ANTIBIOTIC LEVEL
     Route: 042
  7. VANCOMYCIN HYDROCHLORIDE [Concomitant]
     Indication: ANTIBIOTIC LEVEL
     Route: 042
  8. CEFTAZIDIME [Concomitant]
     Indication: ANTIBIOTIC LEVEL
     Route: 042
  9. CYANOCOBALAMIN AND PYRIDOXINE AND THIAMINE [Concomitant]
     Route: 042
  10. ASCORBIC ACID [Concomitant]
     Indication: VITAMIN SUPPLEMENTATION
     Route: 042
  11. PANTHENOL [Concomitant]
     Indication: VITAMIN SUPPLEMENTATION
     Route: 042
  12. CALCIUM GLUCONATE [Concomitant]
     Route: 042
  13. POTASSIUM CHLORIDE [Concomitant]
     Route: 042
  14. FUROSEMIDE [Concomitant]
     Indication: POLYURIA
     Route: 042
  15. CANRENOATE POTASSIUM [Concomitant]
     Indication: POLYURIA
     Route: 042
  16. BIFIDOBACTERIUM ANIMALIS AND LACTOBACILLUS ACIDOPHILUS [Concomitant]
     Route: 048
  17. NIFEDIPINE [Concomitant]
     Indication: HYPERTENSION
     Route: 048
  18. POLYMYXIN B SULFATE [Concomitant]
     Indication: ANTIBIOTIC THERAPY
     Route: 061
  19. VECURONIUM BROMIDE [Concomitant]
     Indication: MUSCLE RELAXANT THERAPY
     Route: 042
  20. PROPOFOL [Concomitant]
     Indication: SEDATION
     Route: 042
  21. ATROPINE SULFATE [Concomitant]
     Route: 042
  22. NEOSTIGMINE BROMIDE [Concomitant]
     Route: 042
  23. NITROUS OXIDE [Concomitant]
     Indication: ANAESTHESIA
  24. SEVOFLURANE [Concomitant]
     Indication: ANAESTHESIA
  25. NICARDIPINE HYDROCHLORIDE [Suspect]
     Indication: HYPERTENSION
     Route: 048
  26. NICARDIPINE HYDROCHLORIDE [Suspect]
     Route: 042
  27. CEFAZOLIN SODIUM [Suspect]
     Indication: THERMAL BURN
     Route: 042
  28. CEFAZOLIN SODIUM [Suspect]
     Indication: PNEUMONIA
     Route: 042
  29. MIDAZOLAM [Suspect]
     Indication: SEDATION
     Route: 042

REACTIONS (1)
  - TOXIC EPIDERMAL NECROLYSIS [None]
